FAERS Safety Report 11253645 (Version 1)
Quarter: 2015Q3

REPORT INFORMATION
  Report Type: Spontaneous
  Country: JP (occurrence: JP)
  Receive Date: 20150709
  Receipt Date: 20150709
  Transmission Date: 20151125
  Serious: Yes (Other)
  Sender: FDA-Public Use
  Company Number: JP-MALLINCKRODT-T201503337

PATIENT
  Age: 76 Year
  Sex: Male
  Weight: 53 kg

DRUGS (11)
  1. METHADONE [Suspect]
     Active Substance: METHADONE HYDROCHLORIDE
     Indication: CANCER PAIN
     Dosage: 5 MG, (15 MG DAILY DOSE)
     Route: 048
     Dates: start: 20140729, end: 20140803
  2. ROPION [Concomitant]
     Active Substance: FLURBIPROFEN AXETIL
     Dosage: 50 MG
     Route: 042
     Dates: start: 20140801, end: 20140804
  3. FUROSEMIDE. [Concomitant]
     Active Substance: FUROSEMIDE
     Dosage: 20 MG
     Route: 048
  4. URSODEOXYCHOLIC ACID [Concomitant]
     Active Substance: URSODIOL
     Dosage: 600 MG
     Route: 048
  5. TETUCUR S [Concomitant]
     Dosage: 200 MG
     Route: 048
  6. SODIUM HYALURONATE [Concomitant]
     Active Substance: HYALURONATE SODIUM
     Dosage: 1 GTT
     Route: 047
     Dates: start: 20140729, end: 20140729
  7. WYSTAL [Concomitant]
     Active Substance: CEFOPERAZONE SODIUM\SULBACTAM SODIUM
     Dosage: 2 G
     Route: 042
  8. CELECOX [Concomitant]
     Active Substance: CELECOXIB
     Dosage: 200 MG
     Route: 048
  9. TAKEPRON [Concomitant]
     Active Substance: LANSOPRAZOLE
     Dosage: 30 MG
     Route: 048
  10. CRAVIT [Concomitant]
     Active Substance: LEVOFLOXACIN
     Dosage: 3 GTT
     Route: 047
     Dates: start: 20140730, end: 20140730
  11. PRORANON [Concomitant]
     Dosage: 4 GTT
     Route: 047
     Dates: start: 20150730, end: 20150730

REACTIONS (1)
  - Pneumonia [Recovering/Resolving]

NARRATIVE: CASE EVENT DATE: 20140803
